FAERS Safety Report 8165675-2 (Version None)
Quarter: 2012Q1

REPORT INFORMATION
  Report Type: 
  Country: None (occurrence: None)
  Receive Date: 20120227
  Receipt Date: 20120215
  Transmission Date: 20120608
  Serious: Yes (Other)
  Sender: FDA-Public Use
  Company Number: US-BRISTOL-MYERS SQUIBB COMPANY-16332017

PATIENT
  Age: 34 Year
  Sex: Female

DRUGS (5)
  1. COMBIVIR [Suspect]
     Indication: HIV INFECTION
     Dosage: 1DF=1 TABLET;150MG+300MG
     Route: 048
     Dates: start: 20100426, end: 20100526
  2. TRUVADA [Suspect]
     Indication: HIV INFECTION
     Dosage: 1DF=1TABS;(300MG+200MG)
     Route: 048
     Dates: start: 20100426, end: 20100526
  3. MONODOX [Concomitant]
     Indication: ACNE
  4. REYATAZ [Suspect]
     Indication: HIV INFECTION
     Route: 048
     Dates: start: 20100426, end: 20100526
  5. TOPAMAX [Concomitant]
     Indication: MIGRAINE

REACTIONS (10)
  - JAUNDICE [None]
  - IMPAIRED GASTRIC EMPTYING [None]
  - DEPRESSION [None]
  - CHOLECYSTITIS [None]
  - ANXIETY [None]
  - PALPITATIONS [None]
  - PELVIC FLOOR DYSSYNERGIA [None]
  - GASTROINTESTINAL HYPOMOTILITY [None]
  - MYALGIA [None]
  - PARAESTHESIA [None]
